FAERS Safety Report 5978967-X (Version None)
Quarter: 2008Q4

REPORT INFORMATION
  Report Type: 
  Country: None (occurrence: None)
  Receive Date: 20081204
  Receipt Date: 20071218
  Transmission Date: 20090506
  Serious: No
  Sender: FDA-Public Use
  Company Number: US-ABBOTT-08P-163-0432189-00

PATIENT
  Sex: Male
  Weight: 113.6 kg

DRUGS (2)
  1. TRICOR [Suspect]
     Indication: BLOOD CHOLESTEROL INCREASED
     Route: 048
     Dates: start: 20070801, end: 20071217
  2. UNKNOWN BLOOD PRESSURE [Concomitant]
     Indication: HYPERTENSION

REACTIONS (1)
  - ARTHRALGIA [None]
